FAERS Safety Report 4930595-0 (Version None)
Quarter: 2006Q1

REPORT INFORMATION
  Report Type: 
  Country: None (occurrence: None)
  Receive Date: 20060302
  Receipt Date: 20051011
  Transmission Date: 20060701
  Serious: Yes (Death, Hospitalization, Disabling, Other)
  Sender: FDA-Public Use
  Company Number: US-MERCK-0510USA06626

PATIENT
  Age: 74 Year
  Sex: Male
  Weight: 68 kg

DRUGS (18)
  1. FLOMAX (MORNIFLUMATE) [Concomitant]
     Route: 065
  2. PREDNISOLONE [Concomitant]
     Route: 065
  3. [COMPOSITION UNSPECIFIED] [Concomitant]
     Route: 065
  4. VEETIDS [Concomitant]
     Route: 065
  5. ACETAMINOPHEN AND CODEINE [Concomitant]
     Route: 065
  6. HYTRIN [Concomitant]
     Route: 065
  7. VIOXX [Suspect]
     Indication: ARTHRITIS
     Route: 048
     Dates: start: 19990917, end: 20000229
  8. VIOXX [Suspect]
     Route: 048
     Dates: start: 20000229, end: 20000814
  9. VIOXX [Suspect]
     Route: 048
     Dates: start: 20010910, end: 20020910
  10. NEURONTIN [Concomitant]
     Route: 065
  11. LOPRESSOR [Concomitant]
     Route: 065
  12. MECLIZINE [Concomitant]
     Route: 065
  13. PLAVIX [Concomitant]
     Route: 065
  14. ISOSORBIDE [Concomitant]
     Route: 065
  15. MOTRIN [Concomitant]
     Route: 065
  16. PREDNISONE [Concomitant]
     Route: 065
  17. HYDROCORTISONE [Concomitant]
     Route: 065
  18. NORVASC [Concomitant]
     Route: 065

REACTIONS (20)
  - ACUTE RESPIRATORY FAILURE [None]
  - C-REACTIVE PROTEIN INCREASED [None]
  - CAMPBELL DE MORGAN SPOTS [None]
  - CAROTID ARTERY STENOSIS [None]
  - CATARACT [None]
  - CEREBROVASCULAR ACCIDENT [None]
  - CHRONIC OBSTRUCTIVE PULMONARY DISEASE [None]
  - CORONARY ARTERY DISEASE [None]
  - DEMENTIA [None]
  - DYSPNOEA [None]
  - EMPHYSEMA [None]
  - HIP FRACTURE [None]
  - HYPERHOMOCYSTEINAEMIA [None]
  - HYPERTENSION [None]
  - METASTASES TO SPINE [None]
  - PAIN IN EXTREMITY [None]
  - RENAL CYST [None]
  - SEBORRHOEIC KERATOSIS [None]
  - TRANSIENT ISCHAEMIC ATTACK [None]
  - WERNICKE'S ENCEPHALOPATHY [None]
